FAERS Safety Report 7401520-8 (Version None)
Quarter: 2011Q2

REPORT INFORMATION
  Report Type: 
  Country: None (occurrence: None)
  Receive Date: 20110408
  Receipt Date: 20110328
  Transmission Date: 20111010
  Serious: Yes (Hospitalization)
  Sender: FDA-Public Use
  Company Number: US-BIOGENIDEC-2011BI006915

PATIENT
  Age: 46 Year
  Sex: Female
  Weight: 100 kg

DRUGS (46)
  1. TYSABRI [Suspect]
     Route: 042
     Dates: start: 20090407
  2. TYSABRI [Suspect]
     Route: 042
     Dates: start: 20100709
  3. TYSABRI [Suspect]
     Route: 042
     Dates: end: 20110301
  4. TYSABRI [Suspect]
     Route: 042
     Dates: end: 20110301
  5. PREDNISONE [Concomitant]
     Route: 048
     Dates: start: 20051201
  6. CONJUGATED ESTROGEN [Concomitant]
     Route: 067
  7. METFORMIN HCL [Concomitant]
     Route: 048
  8. TYSABRI [Suspect]
     Indication: BONE MARROW FAILURE
     Route: 042
     Dates: start: 20080725, end: 20080725
  9. TYSABRI [Suspect]
     Route: 042
     Dates: start: 20090310, end: 20090310
  10. TYSABRI [Suspect]
     Route: 042
     Dates: start: 20100709
  11. FLUCONAZOLE [Concomitant]
     Route: 048
  12. NPH, HUMAN INSULIN ISOPHANE [Concomitant]
     Indication: TYPE 2 DIABETES MELLITUS
     Route: 058
  13. ESOMEPRAZOLE [Concomitant]
     Indication: GASTROOESOPHAGEAL REFLUX DISEASE
     Route: 048
  14. METOPROLOL TARTRATE [Concomitant]
     Indication: HYPERTENSION
     Route: 048
  15. NPH, HUMAN INSULIN ISOPHANE [Concomitant]
     Route: 058
  16. TYSABRI [Suspect]
     Route: 042
     Dates: start: 20080923, end: 20081001
  17. TYSABRI [Suspect]
     Route: 042
     Dates: start: 20081118
  18. TYSABRI [Suspect]
     Route: 042
     Dates: end: 20110301
  19. LEVOFLOXACIN [Concomitant]
     Route: 048
  20. TYSABRI [Suspect]
     Indication: IMMUNE SYSTEM DISORDER
     Route: 042
     Dates: start: 20080725, end: 20080725
  21. TYSABRI [Suspect]
     Route: 042
     Dates: start: 20081118
  22. TYSABRI [Suspect]
     Route: 042
     Dates: start: 20090310, end: 20090310
  23. TYSABRI [Suspect]
     Route: 042
     Dates: start: 20090310, end: 20090310
  24. TYSABRI [Suspect]
     Route: 042
     Dates: start: 20090407
  25. TYSABRI [Suspect]
     Route: 042
     Dates: start: 20100709
  26. ACYCLOVIR [Concomitant]
     Route: 048
  27. TYSABRI [Suspect]
     Indication: VASCULITIS
     Route: 042
     Dates: start: 20080725, end: 20080725
  28. TYSABRI [Suspect]
     Route: 042
     Dates: start: 20080923, end: 20081001
  29. TYSABRI [Suspect]
     Route: 042
     Dates: start: 20081118
  30. TYSABRI [Suspect]
     Route: 042
     Dates: start: 20090310, end: 20090310
  31. TYSABRI [Suspect]
     Route: 042
     Dates: start: 20090407
  32. TYSABRI [Suspect]
     Route: 042
     Dates: start: 20100709
  33. DILTIAZEM HCL [Concomitant]
     Indication: HYPERTENSION
     Route: 048
  34. FUROSEMIDE [Concomitant]
     Route: 048
  35. ROSIGLITAZONE MALEATE [Concomitant]
     Route: 048
  36. TYSABRI [Suspect]
     Route: 042
     Dates: start: 20080923, end: 20081001
  37. TYSABRI [Suspect]
     Route: 042
     Dates: end: 20110301
  38. ALENDRONATE SODIUM [Concomitant]
     Route: 048
  39. BACTRIM DS [Concomitant]
     Dates: start: 20110201
  40. TYSABRI [Suspect]
     Indication: LUNG INFILTRATION
     Route: 042
     Dates: start: 20080725, end: 20080725
  41. TYSABRI [Suspect]
     Route: 042
     Dates: start: 20080923, end: 20081001
  42. TYSABRI [Suspect]
     Route: 042
     Dates: start: 20081118
  43. TYSABRI [Suspect]
     Route: 042
     Dates: start: 20090407
  44. NAPROXEN [Concomitant]
     Route: 048
  45. SERTRALINE HYDROCHLORIDE [Concomitant]
     Route: 048
  46. VORICONAZOLE [Concomitant]
     Route: 048

REACTIONS (4)
  - IMMUNE SYSTEM DISORDER [None]
  - VASCULITIS [None]
  - VIRAL INFECTION [None]
  - TYPE 2 DIABETES MELLITUS [None]
